FAERS Safety Report 4408882-4 (Version None)
Quarter: 2004Q3

REPORT INFORMATION
  Report Type: 
  Country: None (occurrence: None)
  Receive Date: 20040727
  Receipt Date: 20040713
  Transmission Date: 20050211
  Serious: Yes (Death)
  Sender: FDA-Public Use
  Company Number: PH-GLAXOSMITHKLINE-B0340365A

PATIENT
  Age: 27 Month
  Sex: Male

DRUGS (2)
  1. ALBENDAZOLE [Suspect]
     Route: 048
  2. DIETHYLCARBAMAZINE CITRATE [Suspect]
     Route: 048

REACTIONS (7)
  - APNOEA [None]
  - CYANOSIS [None]
  - DEATH [None]
  - GAIT DISTURBANCE [None]
  - HYPOTONIA [None]
  - LOSS OF CONSCIOUSNESS [None]
  - PULSE ABSENT [None]
